FAERS Safety Report 20532492 (Version 1)
Quarter: 2022Q1

REPORT INFORMATION
  Report Type: Spontaneous
  Country: US (occurrence: None)
  Receive Date: 20220301
  Receipt Date: 20220301
  Transmission Date: 20220423
  Serious: Yes (unspecified)
  Sender: FDA-Public Use
  Company Number: None

PATIENT
  Age: 33 Year
  Sex: Male
  Weight: 73 kg

DRUGS (1)
  1. FINASTERIDE [Suspect]
     Active Substance: FINASTERIDE
     Indication: Alopecia
     Dosage: 1 MG EVERY DAY PO?
     Route: 048
     Dates: end: 20211106

REACTIONS (6)
  - Rash erythematous [None]
  - Rash [None]
  - Rash papular [None]
  - Eye swelling [None]
  - Erythema of eyelid [None]
  - Rash [None]

NARRATIVE: CASE EVENT DATE: 20211108
